FAERS Safety Report 6354801-3 (Version None)
Quarter: 2009Q3

REPORT INFORMATION
  Report Type: 
  Country: None (occurrence: None)
  Receive Date: 20090909
  Receipt Date: 20090825
  Transmission Date: 20100115
  Serious: Yes (Other)
  Sender: FDA-Public Use
  Company Number: DSA_41541_2009

PATIENT
  Sex: Male

DRUGS (4)
  1. XENAZINE [Suspect]
     Indication: HUNTINGTON'S CHOREA
     Dosage: (12.5 MG TID, (12.5 MG QD), 12.5 MG BID)
     Dates: start: 20090601, end: 20090701
  2. XENAZINE [Suspect]
     Indication: HUNTINGTON'S CHOREA
     Dosage: (12.5 MG TID, (12.5 MG QD), 12.5 MG BID)
     Dates: start: 20090701, end: 20090722
  3. XENAZINE [Suspect]
     Indication: HUNTINGTON'S CHOREA
     Dosage: (12.5 MG TID, (12.5 MG QD), 12.5 MG BID)
     Dates: start: 20090723, end: 20090803
  4. DEPAKOTE ER [Concomitant]

REACTIONS (1)
  - TORTICOLLIS [None]
